FAERS Safety Report 21036402 (Version 1)
Quarter: 2022Q3

REPORT INFORMATION
  Report Type: Spontaneous
  Country: US (occurrence: US)
  Receive Date: 20220702
  Receipt Date: 20220702
  Transmission Date: 20221027
  Serious: Yes (Other)
  Sender: FDA-Public Use
  Company Number: US-SA-SAC20220629001030

PATIENT
  Age: 61 Year
  Sex: Female

DRUGS (1)
  1. ZANTAC [Suspect]
     Active Substance: RANITIDINE HYDROCHLORIDE
     Indication: Product used for unknown indication
     Dosage: UNKNOWN AT THIS TIME, QD
     Dates: start: 198312, end: 201912

REACTIONS (3)
  - Throat cancer [Unknown]
  - Oesophageal carcinoma [Unknown]
  - Nasal cavity cancer [Unknown]

NARRATIVE: CASE EVENT DATE: 20210202
